FAERS Safety Report 7332821-X (Version None)
Quarter: 2011Q1

REPORT INFORMATION
  Report Type: 
  Country: None (occurrence: None)
  Receive Date: 20110304
  Receipt Date: 20110221
  Transmission Date: 20110831
  Serious: Yes (Hospitalization)
  Sender: FDA-Public Use
  Company Number: PHHY2011IT14695

PATIENT
  Sex: Male

DRUGS (2)
  1. CONTRAMAL [Suspect]
     Indication: INTERVERTEBRAL DISC PROTRUSION
     Dosage: 200 MG DAILY
     Route: 048
     Dates: start: 20110129, end: 20110204
  2. VOLTAREN [Suspect]
     Indication: INTERVERTEBRAL DISC PROTRUSION
     Dosage: 75 MG/3 ML
     Route: 042
     Dates: start: 20110204, end: 20110204

REACTIONS (3)
  - HYPERHIDROSIS [None]
  - VOMITING [None]
  - MALAISE [None]
